FAERS Safety Report 22376260 (Version 3)
Quarter: 2023Q2

REPORT INFORMATION
  Report Type: Report from Study
  Country: RU (occurrence: RU)
  Receive Date: 20230527
  Receipt Date: 20230608
  Transmission Date: 20230721
  Serious: Yes (Other)
  Sender: FDA-Public Use
  Company Number: RU-002147023-NVSC2023RU118577

PATIENT
  Age: 0 Year
  Sex: Male
  Weight: 9.9 kg

DRUGS (4)
  1. ZOLGENSMA [Suspect]
     Active Substance: ONASEMNOGENE ABEPARVOVEC-XIOI
     Indication: Spinal muscular atrophy
     Dosage: 58.1 ML, ONCE/SINGLE
     Route: 042
     Dates: start: 20230503
  2. LEVOCARNITINE HYDROCHLORIDE [Concomitant]
     Active Substance: LEVOCARNITINE HYDROCHLORIDE
     Indication: Product used for unknown indication
     Dosage: 0.5 ML, BID (IN THE MORNING AND IN THE EVENING)
     Route: 065
     Dates: start: 20230428, end: 20230512
  3. PREDNISOLONE [Concomitant]
     Active Substance: PREDNISOLONE
     Indication: Product used for unknown indication
     Dosage: 10 MG, QD (IN THE MORNING)
     Route: 065
     Dates: start: 20230501
  4. PREDNISOLONE [Concomitant]
     Active Substance: PREDNISOLONE
     Dosage: 0.3 ML
     Route: 030

REACTIONS (13)
  - Electrocardiogram QT shortened [Unknown]
  - Liver disorder [Unknown]
  - Pancreatic disorder [Unknown]
  - Spleen disorder [Unknown]
  - Bladder hypertrophy [Unknown]
  - Gallbladder disorder [Unknown]
  - Blood disorder [Recovering/Resolving]
  - Kidney enlargement [Unknown]
  - Kidney malrotation [Unknown]
  - Bundle branch block right [Unknown]
  - Restlessness [Unknown]
  - Full blood count increased [Unknown]
  - Hepatic enzyme increased [Unknown]

NARRATIVE: CASE EVENT DATE: 20230504
